FAERS Safety Report 6032621-7 (Version None)
Quarter: 2009Q1

REPORT INFORMATION
  Report Type: 
  Country: None (occurrence: None)
  Receive Date: 20090109
  Receipt Date: 20090105
  Transmission Date: 20090719
  Serious: Yes (Other)
  Sender: FDA-Public Use
  Company Number: PHEH2009US00488

PATIENT
  Sex: Male

DRUGS (4)
  1. ZOMETA [Suspect]
     Indication: RESORPTION BONE INCREASED
     Dosage: UNK
  2. ZOMETA [Suspect]
     Indication: OSTEOPOROSIS
  3. AREDIA [Suspect]
     Indication: RESORPTION BONE INCREASED
     Dosage: UNK
  4. AREDIA [Suspect]
     Indication: OSTEOPOROSIS

REACTIONS (5)
  - ANXIETY [None]
  - GENERAL PHYSICAL HEALTH DETERIORATION [None]
  - INJURY [None]
  - OSTEONECROSIS [None]
  - PAIN [None]
